FAERS Safety Report 17425881 (Version 1)
Quarter: 2020Q1

REPORT INFORMATION
  Report Type: Spontaneous
  Country: FR (occurrence: FR)
  Receive Date: 20200217
  Receipt Date: 20200217
  Transmission Date: 20200409
  Serious: Yes (Hospitalization)
  Sender: FDA-Public Use
  Company Number: FR-MYLANLABS-2020M1015836

PATIENT
  Age: 74 Year
  Sex: Male
  Weight: 75 kg

DRUGS (28)
  1. ONDANSETRON MYLAN 2 MG/ML SOLUTION INJECTABLE [Suspect]
     Active Substance: ONDANSETRON
     Indication: PROPHYLAXIS OF NAUSEA AND VOMITING
     Dosage: UNK
     Route: 051
     Dates: start: 20190923, end: 20190923
  2. PRIMPERAN [Suspect]
     Active Substance: METOCLOPRAMIDE HYDROCHLORIDE
     Dosage: UNK
     Route: 048
     Dates: start: 20190923, end: 20190923
  3. EUPRESSYL                          /00631801/ [Concomitant]
     Active Substance: URAPIDIL
     Dosage: UNK
  4. PANTOPRAZOLE [Concomitant]
     Active Substance: PANTOPRAZOLE
     Dosage: UNK
  5. ALIMTA [Suspect]
     Active Substance: PEMETREXED DISODIUM
     Dosage: UNK
     Dates: start: 20190923, end: 20190923
  6. ALIMTA [Suspect]
     Active Substance: PEMETREXED DISODIUM
     Dosage: UNK
     Dates: start: 20190923, end: 20190923
  7. CARBOPLATIN ACCORD [Suspect]
     Active Substance: CARBOPLATIN
     Dosage: 1 DOSAGE FORM, CYCLE
     Route: 051
     Dates: start: 20190923, end: 20190923
  8. ONDANSETRON MYLAN 2 MG/ML SOLUTION INJECTABLE [Suspect]
     Active Substance: ONDANSETRON
     Dosage: UNK
     Dates: start: 20190923, end: 20190923
  9. PRIMPERAN [Suspect]
     Active Substance: METOCLOPRAMIDE HYDROCHLORIDE
     Indication: PRODUCT USED FOR UNKNOWN INDICATION
     Dosage: UNK
     Route: 048
     Dates: start: 20190923, end: 20190923
  10. KARDEGIC [Concomitant]
     Active Substance: ASPIRIN DL-LYSINE
     Dosage: UNK
  11. CARBOPLATIN ACCORD [Suspect]
     Active Substance: CARBOPLATIN
     Dosage: UNK
     Dates: start: 20190923, end: 20190923
  12. SYMBICORT [Concomitant]
     Active Substance: BUDESONIDE\FORMOTEROL FUMARATE DIHYDRATE
     Dosage: UNK
  13. ONDANSETRON MYLAN 2 MG/ML SOLUTION INJECTABLE [Suspect]
     Active Substance: ONDANSETRON
     Dosage: 1 DOSAGE FORM, CYCLE
     Route: 051
     Dates: start: 20190923, end: 20190923
  14. ALIMTA [Suspect]
     Active Substance: PEMETREXED DISODIUM
     Indication: LUNG ADENOCARCINOMA
     Dosage: UNK
     Route: 051
     Dates: start: 20190923, end: 20190923
  15. PRIMPERAN [Suspect]
     Active Substance: METOCLOPRAMIDE HYDROCHLORIDE
     Dosage: 1 DOSAGE FORM, CYCLE
     Route: 051
     Dates: start: 20190923, end: 20190923
  16. ACIDE FOLIQUE [Concomitant]
     Active Substance: FOLIC ACID
     Dosage: UNK
  17. ALIMTA [Suspect]
     Active Substance: PEMETREXED DISODIUM
     Dosage: 1 DOSAGE FORM, CYCLE
     Route: 051
     Dates: start: 20190923, end: 20190923
  18. CARBOPLATIN ACCORD [Suspect]
     Active Substance: CARBOPLATIN
     Indication: LUNG ADENOCARCINOMA
     Dosage: UNK
     Route: 051
     Dates: start: 20190923, end: 20190923
  19. GLUCOSE [Concomitant]
     Active Substance: DEXTROSE
     Dosage: UNK
  20. ALPRAZOLAM. [Concomitant]
     Active Substance: ALPRAZOLAM
     Dosage: UNK
  21. METFORMINE                         /00082701/ [Concomitant]
     Active Substance: METFORMIN HYDROCHLORIDE
     Dosage: UNK
  22. TAHOR [Concomitant]
     Active Substance: ATORVASTATIN CALCIUM
     Dosage: UNK
  23. ONDANSETRON MYLAN 2 MG/ML SOLUTION INJECTABLE [Suspect]
     Active Substance: ONDANSETRON
     Dosage: UNK
     Dates: start: 20190923, end: 20190923
  24. PRIMPERAN [Suspect]
     Active Substance: METOCLOPRAMIDE HYDROCHLORIDE
     Indication: PROPHYLAXIS OF NAUSEA AND VOMITING
     Dosage: UNK
     Route: 051
     Dates: start: 20190923, end: 20190923
  25. CARBOPLATIN ACCORD [Suspect]
     Active Substance: CARBOPLATIN
     Dosage: UNK
     Dates: start: 20190923, end: 20190923
  26. ZANEXTRA [Concomitant]
     Active Substance: ENALAPRIL MALEATE\LERCANIDIPINE HYDROCHLORIDE
     Dosage: UNK
  27. SITAGLIPTINE [Concomitant]
     Active Substance: SITAGLIPTIN
     Dosage: UNK
  28. EZETROL [Concomitant]
     Active Substance: EZETIMIBE
     Dosage: UNK

REACTIONS (1)
  - Acute kidney injury [Recovered/Resolved with Sequelae]

NARRATIVE: CASE EVENT DATE: 20191002
